FAERS Safety Report 5630725-1 (Version None)
Quarter: 2008Q1

REPORT INFORMATION
  Report Type: 
  Country: None (occurrence: None)
  Receive Date: 20080219
  Receipt Date: 20080211
  Transmission Date: 20080703
  Serious: Yes (Other)
  Sender: FDA-Public Use
  Company Number: SE-JNJFOC-20070700220

PATIENT
  Age: 26 Year
  Sex: Female

DRUGS (4)
  1. CONCERTA [Suspect]
     Indication: ATTENTION DEFICIT/HYPERACTIVITY DISORDER
     Route: 048
  2. LERGIGAN [Concomitant]
  3. FLUOXETINE [Concomitant]
  4. NORGESTIMATE AND ETHINYL ESTRADIOL [Concomitant]

REACTIONS (5)
  - BLOOD CORTISOL INCREASED [None]
  - HYPERTENSION [None]
  - LIVER DISORDER [None]
  - TACHYCARDIA [None]
  - WEIGHT DECREASED [None]
